FAERS Safety Report 8250012-5 (Version None)
Quarter: 2012Q2

REPORT INFORMATION
  Report Type: 
  Country: None (occurrence: None)
  Receive Date: 20120402
  Receipt Date: 20120323
  Transmission Date: 20120825
  Serious: Yes (Hospitalization, Other)
  Sender: FDA-Public Use
  Company Number: US-ELI_LILLY_AND_COMPANY-US201203007771

PATIENT

DRUGS (12)
  1. POTASSIUM [Concomitant]
  2. SYNTHROID [Concomitant]
  3. CYMBALTA [Concomitant]
  4. CALCIUM CARBONATE [Concomitant]
  5. DOMPERIDONE [Concomitant]
  6. ASMANEX TWISTHALER [Concomitant]
  7. LORTAB [Concomitant]
  8. DIOVAN [Concomitant]
  9. FORTEO [Suspect]
     Indication: OSTEOPOROSIS
     Dosage: 20 UG, QD
     Dates: start: 20091001, end: 20111012
  10. REVIA [Concomitant]
  11. XANAX [Concomitant]
  12. COLACE [Concomitant]

REACTIONS (2)
  - FEMUR FRACTURE [None]
  - FALL [None]
